FAERS Safety Report 7613237-5 (Version None)
Quarter: 2011Q3

REPORT INFORMATION
  Report Type: 
  Country: None (occurrence: None)
  Receive Date: 20110708
  Receipt Date: 20110616
  Transmission Date: 20111222
  Serious: Yes (Hospitalization)
  Sender: FDA-Public Use
  Company Number: JPI-P-015557

PATIENT
  Age: 54 Year
  Sex: Female

DRUGS (3)
  1. XYREM [Suspect]
     Indication: CATAPLEXY
     Dosage: 5 GM  (2.5 GM, 2 IN 1 D), ORAL
     Route: 048
     Dates: start: 20090425
  2. MODAFINIL [Concomitant]
  3. VENLAFAXINE [Concomitant]

REACTIONS (1)
  - BREAST CANCER FEMALE [None]
